FAERS Safety Report 7214754-2 (Version None)
Quarter: 2011Q1

REPORT INFORMATION
  Report Type: 
  Country: None (occurrence: None)
  Receive Date: 20110107
  Receipt Date: 20100126
  Transmission Date: 20110831
  Serious: No
  Sender: FDA-Public Use
  Company Number: A0841478A

PATIENT
  Age: 67 Year
  Sex: Female

DRUGS (13)
  1. ASA BABY [Concomitant]
  2. VITAMIN B6 [Concomitant]
  3. ANTI-CHOLESTEROL MEDICATION [Concomitant]
  4. PLAVIX [Concomitant]
  5. ATENOLOL [Concomitant]
  6. OMEPRAZOLE [Concomitant]
  7. CRESTOR [Concomitant]
  8. SYNTHROID [Concomitant]
  9. DIOVAN [Concomitant]
  10. JANUMET [Concomitant]
  11. VITAMIN D [Concomitant]
  12. M.V.I. [Concomitant]
  13. LOVAZA [Suspect]
     Dosage: 4G PER DAY
     Route: 048
     Dates: start: 20091222

REACTIONS (4)
  - ABNORMAL FAECES [None]
  - FAECES DISCOLOURED [None]
  - ABDOMINAL DISCOMFORT [None]
  - DIARRHOEA [None]
